FAERS Safety Report 7587505-X (Version None)
Quarter: 2011Q3

REPORT INFORMATION
  Report Type: 
  Country: None (occurrence: None)
  Receive Date: 20110704
  Receipt Date: 20110630
  Transmission Date: 20111222
  Serious: Yes (Other)
  Sender: FDA-Public Use
  Company Number: ES-BRISTOL-MYERS SQUIBB COMPANY-15869324

PATIENT
  Age: 31 Year
  Sex: Male

DRUGS (1)
  1. ARIPIPRAZOLE [Suspect]
     Dosage: INITIAL DOSE 10MG AND 3RD JUNE 2011 INCREASED TO 15MG
     Dates: start: 20110527

REACTIONS (5)
  - NAUSEA [None]
  - NERVOUSNESS [None]
  - PARANOIA [None]
  - VOMITING [None]
  - PANIC REACTION [None]
